FAERS Safety Report 9355117 (Version 1)
Quarter: 2013Q2

REPORT INFORMATION
  Report Type: Spontaneous
  Country: CZ (occurrence: CZ)
  Receive Date: 20130619
  Receipt Date: 20130619
  Transmission Date: 20140414
  Serious: Yes (Other)
  Sender: FDA-Public Use
  Company Number: CZ-BAYER-2013-072222

PATIENT
  Age: 38 Year
  Sex: Female

DRUGS (1)
  1. MIRENA [Suspect]
     Indication: CONTRACEPTION
     Dosage: 20 ?G/D, CONT
     Route: 015
     Dates: start: 20130314, end: 20130611

REACTIONS (14)
  - Mental disorder [None]
  - Irritability [None]
  - Disturbance in attention [None]
  - Phobia of driving [None]
  - Apathy [None]
  - Depressed mood [None]
  - Oedema peripheral [None]
  - Face oedema [None]
  - Food craving [None]
  - Weight increased [None]
  - Menorrhagia [None]
  - Alopecia [None]
  - Sweat gland disorder [None]
  - Headache [None]
